FAERS Safety Report 4595199-0 (Version None)
Quarter: 2005Q1

REPORT INFORMATION
  Report Type: 
  Country: None (occurrence: None)
  Receive Date: 20050225
  Receipt Date: 20050201
  Transmission Date: 20050727
  Serious: No
  Sender: FDA-Public Use
  Company Number: USA050290341

PATIENT
  Age: 8 Year
  Sex: Female

DRUGS (2)
  1. STRATTERA [Suspect]
     Dosage: 50 MG DAY
     Dates: start: 20030808, end: 20050114
  2. CONCENTRA (METHYLPHENIDATE HYDROCHLORIDE) [Concomitant]

REACTIONS (1)
  - ALANINE AMINOTRANSFERASE INCREASED [None]
